FAERS Safety Report 4883659-4 (Version None)
Quarter: 2006Q1

REPORT INFORMATION
  Report Type: 
  Country: None (occurrence: None)
  Receive Date: 20060113
  Receipt Date: 20051230
  Transmission Date: 20060701
  Serious: Yes (Death)
  Sender: FDA-Public Use
  Company Number: US200601000184

PATIENT
  Sex: Male

DRUGS (1)
  1. HUMAN INSULIN (RDNA ORIGIN)(HUMAN INSULIN (RDNA ORIGIN) [Suspect]

REACTIONS (1)
  - DRUG HYPERSENSITIVITY [None]
